FAERS Safety Report 21794981 (Version 1)
Quarter: 2022Q4

REPORT INFORMATION
  Report Type: Spontaneous
  Country: US (occurrence: None)
  Receive Date: 20221228
  Receipt Date: 20221228
  Transmission Date: 20230112
  Serious: Yes (Other)
  Sender: FDA-Public Use
  Company Number: None

PATIENT
  Age: 22 Year
  Sex: Female
  Weight: 58.06 kg

DRUGS (1)
  1. BUPRENORPHINE\NALOXONE [Suspect]
     Active Substance: BUPRENORPHINE\NALOXONE
     Indication: Drug dependence
     Dosage: 2 TABLET 1XDAY ORAL
     Route: 048
     Dates: start: 20220622

REACTIONS (2)
  - Vomiting [None]
  - Drug level below therapeutic [None]

NARRATIVE: CASE EVENT DATE: 20221228
